FAERS Safety Report 7578304-3 (Version None)
Quarter: 2011Q2

REPORT INFORMATION
  Report Type: 
  Country: None (occurrence: None)
  Receive Date: 20110628
  Receipt Date: 20110617
  Transmission Date: 20111010
  Serious: Yes (Hospitalization)
  Sender: FDA-Public Use
  Company Number: US-ELI_LILLY_AND_COMPANY-US201106005792

PATIENT
  Sex: Male

DRUGS (2)
  1. CHEMOTHERAPEUTICS [Concomitant]
  2. CIALIS [Suspect]
     Dosage: 20 MG, UNK
     Dates: start: 20091201

REACTIONS (2)
  - DRUG INEFFECTIVE [None]
  - HOSPITALISATION [None]
